FAERS Safety Report 4797461-5 (Version None)
Quarter: 2005Q4

REPORT INFORMATION
  Report Type: 
  Country: None (occurrence: None)
  Receive Date: 20051006
  Receipt Date: 20051006
  Transmission Date: 20060501
  Serious: Yes (Hospitalization)
  Sender: FDA-Public Use
  Company Number: None

PATIENT
  Age: 68 Year
  Sex: Male
  Weight: 87.0906 kg

DRUGS (1)
  1. VANCOMYCIN [Suspect]
     Indication: WOUND INFECTION
     Dosage: 1250MG IV Q 12 HOURS
     Route: 042

REACTIONS (1)
  - RASH PRURITIC [None]
